FAERS Safety Report 9238395 (Version 2)
Quarter: 2013Q2

REPORT INFORMATION
  Report Type: Spontaneous
  Country: JP (occurrence: JP)
  Receive Date: 20130418
  Receipt Date: 20130626
  Transmission Date: 20140414
  Serious: Yes (Hospitalization)
  Sender: FDA-Public Use
  Company Number: PHHY2013JP036621

PATIENT
  Age: 1 Year
  Sex: Male
  Weight: 10.6 kg

DRUGS (3)
  1. CEFTRIAXONE [Suspect]
     Indication: MENINGITIS BACTERIAL
     Dosage: 120 MG/KG PER DAY
     Route: 042
  2. MEROPENEM [Concomitant]
     Indication: MENINGITIS BACTERIAL
     Dosage: 120 MG/KG, DAILY
     Route: 042
  3. DEXAMETHASONE [Concomitant]
     Dosage: 0.15 MG/KG, Q6H
     Route: 042

REACTIONS (3)
  - Urine abnormality [Recovered/Resolved]
  - Chromaturia [Recovered/Resolved]
  - Urine calcium/creatinine ratio increased [Recovered/Resolved]
